FAERS Safety Report 10244737 (Version 1)
Quarter: 2014Q2

REPORT INFORMATION
  Report Type: Spontaneous
  Country: US (occurrence: US)
  Receive Date: 20140618
  Receipt Date: 20140618
  Transmission Date: 20141212
  Serious: No
  Sender: FDA-Public Use
  Company Number: US-PFIZER INC-2014166545

PATIENT
  Sex: Female

DRUGS (1)
  1. ZOLOFT [Suspect]
     Dosage: UNK
     Dates: start: 2014

REACTIONS (4)
  - Nausea [Unknown]
  - Decreased appetite [Unknown]
  - Heart rate increased [Unknown]
  - Muscle twitching [Unknown]
